FAERS Safety Report 6610094-0 (Version None)
Quarter: 2010Q1

REPORT INFORMATION
  Report Type: 
  Country: None (occurrence: None)
  Receive Date: 20100216
  Receipt Date: 20090310
  Transmission Date: 20100710
  Serious: Yes (Other)
  Sender: FDA-Public Use
  Company Number: MC200900071

PATIENT
  Age: 73 Year
  Sex: Male

DRUGS (7)
  1. ANGIOMAX [Suspect]
     Indication: PERCUTANEOUS CORONARY INTERVENTION
     Dosage: 0.75 MG/KG, BOLUS, INTRAVENOUS; ALTERED DOSE, INTERVENOUS
     Route: 040
     Dates: start: 20090224, end: 20090224
  2. ANGIOMAX [Suspect]
     Indication: STENT PLACEMENT
     Dosage: 0.75 MG/KG, BOLUS, INTRAVENOUS; ALTERED DOSE, INTERVENOUS
     Route: 040
     Dates: start: 20090224, end: 20090224
  3. ANGIOMAX [Suspect]
     Indication: PERCUTANEOUS CORONARY INTERVENTION
     Dosage: 0.75 MG/KG, BOLUS, INTRAVENOUS; ALTERED DOSE, INTERVENOUS
     Route: 040
     Dates: start: 20090224, end: 20090224
  4. ANGIOMAX [Suspect]
     Indication: STENT PLACEMENT
     Dosage: 0.75 MG/KG, BOLUS, INTRAVENOUS; ALTERED DOSE, INTERVENOUS
     Route: 040
     Dates: start: 20090224, end: 20090224
  5. PLAVIX [Concomitant]
  6. ASPIRIN [Concomitant]
  7. HEPARIN [Concomitant]

REACTIONS (2)
  - COAGULATION TIME ABNORMAL [None]
  - THROMBOSIS IN DEVICE [None]
